FAERS Safety Report 21804110 (Version 1)
Quarter: 2023Q1

REPORT INFORMATION
  Report Type: Other
  Country: US (occurrence: None)
  Receive Date: 20230102
  Receipt Date: 20230102
  Transmission Date: 20230417
  Serious: No
  Sender: FDA-Public Use
  Company Number: US-ROCHE-3254477

PATIENT
  Age: 72 Year
  Sex: Male

DRUGS (1)
  1. OCREVUS [Suspect]
     Active Substance: OCRELIZUMAB
     Indication: Relapsing multiple sclerosis
     Dosage: 300 MG AT DAY 1 AND DAY 15 THEN 600 MG EVERY 6 MONTHS. ?DATE OF TREATMENT: 20/MAY/2022, 17/DEC/2021,
     Route: 042
     Dates: start: 20201216

REACTIONS (1)
  - COVID-19 [Recovered/Resolved]

NARRATIVE: CASE EVENT DATE: 20221216
